FAERS Safety Report 22186246 (Version 1)
Quarter: 2023Q2

REPORT INFORMATION
  Report Type: Spontaneous
  Country: US (occurrence: US)
  Receive Date: 20230407
  Receipt Date: 20230407
  Transmission Date: 20230721
  Serious: Yes (Other)
  Sender: FDA-Public Use
  Company Number: US-drreddys-SPO/USA/23/0163147

PATIENT
  Age: 22 Year
  Sex: Female

DRUGS (2)
  1. ACCUTANE [Suspect]
     Active Substance: ISOTRETINOIN
     Indication: Product used for unknown indication
     Dosage: RMA ISSUE DATES: 26 JANUARY 2023 10:05:19 AM, 22 MARCH 2023 12:47:25 PM
  2. ACCUTANE [Suspect]
     Active Substance: ISOTRETINOIN
     Dosage: RMA ISSUE DATES: 05 MAY 2022 01:19:28 PM, 17 AUGUST 2022 03:32:14 PM, 19 SEPTEMBER 2022 04:45:30 PM,

REACTIONS (1)
  - Rectal haemorrhage [Unknown]
